FAERS Safety Report 17312261 (Version 1)
Quarter: 2020Q1

REPORT INFORMATION
  Report Type: Spontaneous
  Country: US (occurrence: US)
  Receive Date: 20200123
  Receipt Date: 20200123
  Transmission Date: 20200409
  Serious: No
  Sender: FDA-Public Use
  Company Number: US-NOVOPROD-689020

PATIENT
  Age: 63 Year
  Sex: Female

DRUGS (1)
  1. OZEMPIC [Suspect]
     Active Substance: SEMAGLUTIDE
     Indication: TYPE 2 DIABETES MELLITUS
     Dosage: 0.25 MG WEEKLY
     Route: 058
     Dates: start: 201907

REACTIONS (7)
  - Liquid product physical issue [Not Recovered/Not Resolved]
  - Injection site bruising [Not Recovered/Not Resolved]
  - Nausea [Unknown]
  - Blood pressure increased [Recovering/Resolving]
  - Device breakage [Unknown]
  - Off label use [Not Recovered/Not Resolved]
  - Hunger [Recovering/Resolving]

NARRATIVE: CASE EVENT DATE: 2019
